FAERS Safety Report 15109960 (Version 2)
Quarter: 2018Q3

REPORT INFORMATION
  Report Type: Spontaneous
  Country: PL (occurrence: PL)
  Receive Date: 20180705
  Receipt Date: 20180917
  Transmission Date: 20181010
  Serious: Yes (Death)
  Sender: FDA-Public Use
  Company Number: PL-SAKK-2018SA174178AA

PATIENT
  Age: 68 Year
  Sex: Male
  Weight: 126 kg

DRUGS (6)
  1. ATORVASTATIN [Concomitant]
     Active Substance: ATORVASTATIN
     Indication: PRODUCT USED FOR UNKNOWN INDICATION
     Dosage: UNK
     Route: 065
  2. ZOFENOPRIL [Concomitant]
     Active Substance: ZOFENOPRIL
     Indication: PRODUCT USED FOR UNKNOWN INDICATION
     Dosage: UNK
     Route: 065
  3. ASA [Concomitant]
     Active Substance: ASPIRIN
     Indication: PRODUCT USED FOR UNKNOWN INDICATION
     Dosage: UNK
     Route: 065
  4. PLAVIX [Suspect]
     Active Substance: CLOPIDOGREL BISULFATE
     Indication: ACUTE MYOCARDIAL INFARCTION
     Dosage: 75 MG
     Route: 048
     Dates: start: 201801, end: 20180518
  5. MYSIMBA [Suspect]
     Active Substance: BUPROPION HYDROCHLORIDE\NALTREXONE HYDROCHLORIDE
     Indication: OBESITY
     Dosage: UNK UNK, QD
     Route: 048
     Dates: start: 20180514, end: 20180518
  6. NEBIVOLOL. [Concomitant]
     Active Substance: NEBIVOLOL
     Indication: PRODUCT USED FOR UNKNOWN INDICATION
     Route: 065

REACTIONS (2)
  - Central nervous system haemorrhage [Fatal]
  - Seizure [Fatal]

NARRATIVE: CASE EVENT DATE: 20180518
